FAERS Safety Report 12365361 (Version 3)
Quarter: 2016Q2

REPORT INFORMATION
  Report Type: Spontaneous
  Country: BR (occurrence: BR)
  Receive Date: 20160513
  Receipt Date: 20160616
  Transmission Date: 20160815
  Serious: Yes (Death, Hospitalization)
  Sender: FDA-Public Use
  Company Number: BR-PFIZER INC-2016190125

PATIENT
  Age: 60 Year
  Sex: Male
  Weight: 72 kg

DRUGS (1)
  1. SUTENT [Suspect]
     Active Substance: SUNITINIB MALATE
     Indication: METASTATIC RENAL CELL CARCINOMA
     Dosage: 50 MG, CYCLIC 4 WEEKS ON 2 WEEKS OFF
     Route: 048
     Dates: start: 20160308, end: 201604

REACTIONS (12)
  - Epidermolysis bullosa [Recovering/Resolving]
  - Weight decreased [Recovering/Resolving]
  - Papule [Recovering/Resolving]
  - Influenza [Recovering/Resolving]
  - Cough [Recovering/Resolving]
  - Respiratory arrest [Unknown]
  - Death [Fatal]
  - Lung infection [Recovering/Resolving]
  - Dry mouth [Recovering/Resolving]
  - Rash macular [Recovering/Resolving]
  - Malaise [Recovering/Resolving]
  - Pyrexia [Recovering/Resolving]

NARRATIVE: CASE EVENT DATE: 2016
